FAERS Safety Report 4615545-9 (Version None)
Quarter: 2005Q1

REPORT INFORMATION
  Report Type: 
  Country: None (occurrence: None)
  Receive Date: 20050317
  Receipt Date: 20050304
  Transmission Date: 20050727
  Serious: Yes (Other)
  Sender: FDA-Public Use
  Company Number: 2005037905

PATIENT
  Age: 30 Year
  Sex: Female
  Weight: 79.8331 kg

DRUGS (5)
  1. XANAX [Suspect]
     Indication: ANXIETY
     Dosage: 1 MG (1 MG, AS NEEDED), ORAL
     Route: 048
  2. FLUOXETINE HCL [Concomitant]
  3. ZOLPIDEM TARTRATE [Concomitant]
  4. ALPRAZOLAM [Concomitant]
  5. METAXALONE [Concomitant]

REACTIONS (4)
  - ARTHRITIS [None]
  - FALL [None]
  - JOINT INJURY [None]
  - POST PROCEDURAL COMPLICATION [None]
